FAERS Safety Report 11837674 (Version 1)
Quarter: 2015Q4

REPORT INFORMATION
  Report Type: Report from Study
  Country: CN (occurrence: CN)
  Receive Date: 20151215
  Receipt Date: 20151215
  Transmission Date: 20160305
  Serious: Yes (Other)
  Sender: FDA-Public Use
  Company Number: CN-BAXTER-2015BAX067696

PATIENT

DRUGS (5)
  1. ENDOXAN [Suspect]
     Active Substance: CYCLOPHOSPHAMIDE
     Indication: LUPUS NEPHRITIS
     Dosage: INITIATED AT 0.75 G/M2 BODY SURFACE AREA AND THEN ADJUSTED TO 0.5 TO 1.0 G/M2 BODY SURFACE AREA
     Route: 042
  2. PREDNISONE. [Suspect]
     Active Substance: PREDNISONE
     Dosage: TAPERED BY 5 MG/DAY EVERY 2 WEEKS TO 20 MG/DAY
     Route: 048
  3. PREDNISONE. [Suspect]
     Active Substance: PREDNISONE
     Indication: LUPUS NEPHRITIS
     Dosage: EVERY MORNING FOR 4 WEEKS
     Route: 048
  4. METHYLPREDNISOLONE. [Suspect]
     Active Substance: METHYLPREDNISOLONE
     Indication: LUPUS NEPHRITIS
     Dosage: PULSE THERAPY
     Route: 042
  5. PREDNISONE. [Suspect]
     Active Substance: PREDNISONE
     Dosage: TAPERED BY 2.5 MG/DAY EVERY 2 WEEKS TO A MAINTENANCE DOSE OF 10 MG/DAY
     Route: 048

REACTIONS (1)
  - Teratoma [Recovered/Resolved]
